FAERS Safety Report 17409963 (Version 1)
Quarter: 2020Q1

REPORT INFORMATION
  Report Type: Spontaneous
  Country: IT (occurrence: IT)
  Receive Date: 20200212
  Receipt Date: 20200212
  Transmission Date: 20200409
  Serious: Yes (Death, Other)
  Sender: FDA-Public Use
  Company Number: IT-SA-2020SA035768

PATIENT
  Age: 69 Year
  Sex: Male
  Weight: 68 kg

DRUGS (10)
  1. CETIRIZINE HYDROCHLORIDE. [Suspect]
     Active Substance: CETIRIZINE HYDROCHLORIDE
     Indication: ANAPHYLAXIS PROPHYLAXIS
     Dosage: 10 MG, TOTAL
     Route: 048
     Dates: start: 20190520, end: 20190520
  2. RETINOL [Concomitant]
     Active Substance: RETINOL
     Dosage: 2.5 KIU
     Route: 048
  3. XATRAL [Concomitant]
     Active Substance: ALFUZOSIN
     Indication: BENIGN PROSTATIC HYPERPLASIA
     Dosage: 2.5 MG
     Route: 048
  4. NORVASC [Concomitant]
     Active Substance: AMLODIPINE BESYLATE
     Indication: HYPERTENSION
     Dosage: 5 MG
     Route: 048
  5. RANITIDINE. [Suspect]
     Active Substance: RANITIDINE
     Indication: ANAPHYLAXIS PROPHYLAXIS
     Dosage: 50 MG, TOTAL
     Route: 042
     Dates: start: 20190520, end: 20190520
  6. PARACETAMOL [Suspect]
     Active Substance: ACETAMINOPHEN
     Dosage: 500 MG, TOTAL
     Route: 048
     Dates: start: 20190520, end: 20190520
  7. CARDIOASPIRIN [Concomitant]
     Active Substance: ASPIRIN
     Dosage: 100 MG
     Route: 048
  8. PATISIRAN [Suspect]
     Active Substance: PATISIRAN SODIUM
     Indication: HEREDITARY NEUROPATHIC AMYLOIDOSIS
     Dosage: 0.3 MG, QCY
     Route: 042
     Dates: start: 20180820, end: 20190520
  9. LASIX [Concomitant]
     Active Substance: FUROSEMIDE
     Dosage: 25 MG
     Route: 048
     Dates: start: 20190520, end: 20190520
  10. DEXAMETHASONE SODIUM PHOSPHATE. [Suspect]
     Active Substance: DEXAMETHASONE SODIUM PHOSPHATE
     Indication: ANAPHYLAXIS PROPHYLAXIS
     Dosage: 8 MG, TOTAL
     Route: 042
     Dates: start: 20190520, end: 20190520

REACTIONS (1)
  - Sudden death [Fatal]

NARRATIVE: CASE EVENT DATE: 20190520
